FAERS Safety Report 10388784 (Version 1)
Quarter: 2014Q1

REPORT INFORMATION
  Report Type: Spontaneous
  Country: US (occurrence: None)
  Receive Date: 20140306
  Receipt Date: 20140306
  Transmission Date: 20141002
  Serious: Yes (Other)
  Sender: FDA-Public Use
  Company Number: 163-21880-13123372

PATIENT
  Age: 72 Year
  Sex: Female
  Weight: 78.25 kg

DRUGS (12)
  1. REVLIMID (LENALIDOMIDE) (10 MILLIGRAM, CAPSULES) [Suspect]
     Indication: MYELODYSPLASTIC SYNDROME
     Dosage: 10MG, 21 IN 28 D, PO
     Route: 048
     Dates: start: 20131016
  2. ARMOUR THYROID (THYROID) [Concomitant]
  3. ATORVASTATIN [Concomitant]
  4. CALCIUM + D (OS-CAL) [Concomitant]
  5. CIPRO (CIPROFLOXACIN) [Concomitant]
  6. COQ10 (UBIDECARENONE) [Concomitant]
  7. MAG (MAGNESIUM) [Concomitant]
  8. METOPROLOL TARTRATE [Concomitant]
  9. MULTIVITAMINS [Concomitant]
  10. NEUPOGEN (FILGRASTIM) [Concomitant]
  11. PRIVIGEN (IMMUNOGLOBULIN HUMAN NORMAL) [Concomitant]
  12. PROCRIT (ERYTHROPOTETIN) [Concomitant]

REACTIONS (1)
  - Pancytopenia [None]
